FAERS Safety Report 10239990 (Version 2)
Quarter: 2014Q2

REPORT INFORMATION
  Report Type: Spontaneous
  Country: IT (occurrence: IT)
  Receive Date: 20140616
  Receipt Date: 20140616
  Transmission Date: 20141212
  Serious: Yes (Death, Hospitalization)
  Sender: FDA-Public Use
  Company Number: IT-MYLANLABS-2014S1007222

PATIENT
  Age: 85 Year
  Sex: Female

DRUGS (4)
  1. FUROSEMIDE [Suspect]
     Indication: PRODUCT USED FOR UNKNOWN INDICATION
     Route: 048
     Dates: start: 20131025, end: 20140225
  2. PRADAXA [Suspect]
     Indication: ATRIAL FIBRILLATION
     Dosage: 2 DF DAILY
     Route: 048
     Dates: start: 20131025, end: 20140225
  3. ZAROXOLYN [Suspect]
     Indication: PRODUCT USED FOR UNKNOWN INDICATION
     Route: 048
     Dates: start: 20131025, end: 20140225
  4. SAMYR /00882301/ [Concomitant]
     Indication: PRODUCT USED FOR UNKNOWN INDICATION

REACTIONS (13)
  - Hypokalaemia [Fatal]
  - Hyponatraemia [Fatal]
  - Rectal haemorrhage [Fatal]
  - Renal failure acute [Fatal]
  - Haematochezia [Fatal]
  - Decreased appetite [Fatal]
  - Weight decreased [Fatal]
  - Anaemia [Fatal]
  - Coagulation time prolonged [Fatal]
  - Abdominal pain [Fatal]
  - Hypotension [Fatal]
  - Tachycardia [Fatal]
  - General physical condition abnormal [Fatal]
